FAERS Safety Report 22321647 (Version 1)
Quarter: 2023Q2

REPORT INFORMATION
  Report Type: Report from Study
  Country: US (occurrence: US)
  Receive Date: 20230515
  Receipt Date: 20230515
  Transmission Date: 20230721
  Serious: Yes (Other)
  Sender: FDA-Public Use
  Company Number: US-ABBVIE-4759852

PATIENT
  Age: 38 Year
  Sex: Female

DRUGS (1)
  1. SKYRIZI [Suspect]
     Active Substance: RISANKIZUMAB-RZAA
     Indication: Psoriasis
     Route: 058
     Dates: start: 20210428

REACTIONS (4)
  - Mammoplasty [Recovered/Resolved]
  - Scar [Recovered/Resolved]
  - Pruritus [Recovered/Resolved with Sequelae]
  - Therapeutic response shortened [Unknown]

NARRATIVE: CASE EVENT DATE: 20220311
